FAERS Safety Report 22060843 (Version 1)
Quarter: 2023Q1

REPORT INFORMATION
  Report Type: Spontaneous
  Country: PT (occurrence: PT)
  Receive Date: 20230303
  Receipt Date: 20230303
  Transmission Date: 20230418
  Serious: Yes (Disabling)
  Sender: FDA-Public Use
  Company Number: None

PATIENT
  Age: 67 Year
  Sex: Female

DRUGS (1)
  1. HYDROCHLOROTHIAZIDE\OLMESARTAN MEDOXOMIL [Suspect]
     Active Substance: HYDROCHLOROTHIAZIDE\OLMESARTAN MEDOXOMIL
     Indication: Product used for unknown indication
     Dosage: 32.5 MG, QD (20 MG + 12.5 MG)
     Route: 048
     Dates: start: 20221226

REACTIONS (3)
  - Agitation [Unknown]
  - Dry skin [Unknown]
  - Asthenia [Unknown]

NARRATIVE: CASE EVENT DATE: 20230126
